FAERS Safety Report 17261886 (Version 1)
Quarter: 2020Q1

REPORT INFORMATION
  Report Type: Spontaneous
  Country: US (occurrence: US)
  Receive Date: 20200110
  Receipt Date: 20200110
  Transmission Date: 20200409
  Serious: No
  Sender: FDA-Public Use
  Company Number: None

PATIENT
  Age: 48 Year
  Sex: Female

DRUGS (3)
  1. EXTRA VITAMIN D + C [Concomitant]
  2. DAILY VITAMIN [Concomitant]
     Active Substance: VITAMINS
  3. RITUXAN [Suspect]
     Active Substance: RITUXIMAB
     Indication: IMMUNE THROMBOCYTOPENIC PURPURA
     Route: 042

REACTIONS (2)
  - Incorrect drug administration rate [None]
  - Nonspecific reaction [None]
